FAERS Safety Report 11046756 (Version 1)
Quarter: 2015Q2

REPORT INFORMATION
  Report Type: Spontaneous
  Country: US (occurrence: None)
  Receive Date: 20150416
  Receipt Date: 20150416
  Transmission Date: 20150821
  Serious: Yes (Death)
  Sender: FDA-Public Use
  Company Number: US-001465

PATIENT
  Age: 50 Year
  Sex: Female

DRUGS (2)
  1. GATTEX [Suspect]
     Active Substance: TEDUGLUTIDE\WATER
     Indication: SHORT-BOWEL SYNDROME
     Dosage: DF
     Route: 058
     Dates: start: 20141110, end: 20141228
  2. SOLUTIONS FOR PARENTERAL NUTRITION [Concomitant]
     Active Substance: AMINO ACIDS\DEXTROSE\ELECTROLYTES NOS

REACTIONS (11)
  - Rash erythematous [None]
  - Flushing [None]
  - Gastrointestinal stoma complication [None]
  - Abdominal pain [None]
  - Nausea [None]
  - Myalgia [None]
  - Fatigue [None]
  - Abdominal distension [None]
  - Injection site bruising [None]
  - Musculoskeletal chest pain [None]
  - Pyoderma [None]

NARRATIVE: CASE EVENT DATE: 20141110
